FAERS Safety Report 21165618 (Version 1)
Quarter: 2022Q3

REPORT INFORMATION
  Report Type: Other
  Country: None (occurrence: US)
  Receive Date: 20220803
  Receipt Date: 20220803
  Transmission Date: 20221026
  Serious: Yes (Life-Threatening, Hospitalization, Other)
  Sender: FDA-Public Use
  Company Number: US-Innogenix, LLC-2131490

PATIENT
  Sex: Male

DRUGS (3)
  1. BACLOFEN [Suspect]
     Active Substance: BACLOFEN
     Indication: Product used for unknown indication
     Route: 048
  2. 4-AMINO-3-PHENYLBUTYRIC ACID [Suspect]
     Active Substance: 4-AMINO-3-PHENYLBUTYRIC ACID
     Route: 065
  3. METHYLPHENIDATE [Suspect]
     Active Substance: METHYLPHENIDATE
     Route: 065

REACTIONS (9)
  - Toxicity to various agents [Unknown]
  - Substance abuse [Unknown]
  - Urinary retention [Unknown]
  - Confusional state [Unknown]
  - Seizure [Unknown]
  - Coma [Unknown]
  - Drug dependence [Unknown]
  - Withdrawal syndrome [Unknown]
  - Depression [Unknown]
